FAERS Safety Report 4428536-8 (Version None)
Quarter: 2004Q3

REPORT INFORMATION
  Report Type: 
  Country: None (occurrence: None)
  Receive Date: 20040818
  Receipt Date: 20040813
  Transmission Date: 20050211
  Serious: Yes (Death, Other)
  Sender: FDA-Public Use
  Company Number: US-JNJFOC-20040304914

PATIENT
  Sex: Male

DRUGS (17)
  1. NATRECOR [Suspect]
     Route: 042
  2. OXYCONTIN [Concomitant]
  3. PREDNISONE [Concomitant]
  4. THIAMINE [Concomitant]
  5. ACCUPRIL [Concomitant]
  6. METOPROLOL [Concomitant]
  7. IMDUR [Concomitant]
  8. GLUCOPHAGE [Concomitant]
  9. GLUCOTROL [Concomitant]
  10. BUSPAR [Concomitant]
  11. KEFLEX [Concomitant]
  12. FRAGMIN [Concomitant]
  13. INSPRA [Concomitant]
  14. DIGOXIN [Concomitant]
  15. FOLIC ACID [Concomitant]
  16. LASIX [Concomitant]
  17. NTG SL [Concomitant]

REACTIONS (9)
  - BACTERIAL INFECTION [None]
  - BLINDNESS [None]
  - CATARACT [None]
  - INFLAMMATION [None]
  - PANOPHTHALMITIS [None]
  - RETINITIS VIRAL [None]
  - STRABISMUS [None]
  - UVEITIS [None]
  - VITRITIS [None]
